FAERS Safety Report 5611708-4 (Version None)
Quarter: 2008Q1

REPORT INFORMATION
  Report Type: 
  Country: None (occurrence: None)
  Receive Date: 20080201
  Receipt Date: 20080130
  Transmission Date: 20080703
  Serious: Yes (Hospitalization)
  Sender: FDA-Public Use
  Company Number: FR-MERCK-0711FRA00092

PATIENT
  Age: 65 Year
  Sex: Male

DRUGS (7)
  1. ZOCOR [Suspect]
     Route: 048
  2. FLUINDIONE [Suspect]
     Indication: ARRHYTHMIA
     Route: 048
     Dates: end: 20060613
  3. ASPIRIN LYSINE [Suspect]
     Indication: PROPHYLAXIS
     Route: 048
  4. BISOPROLOL FUMARATE [Concomitant]
     Indication: HYPERTENSION
     Route: 048
  5. RAMIPRIL [Concomitant]
     Indication: HYPERTENSION
     Route: 048
  6. FUROSEMIDE [Concomitant]
     Indication: HYPERTENSION
     Route: 048
  7. SPIRONOLACTONE [Concomitant]
     Indication: HYPERTENSION
     Route: 048

REACTIONS (2)
  - ANAEMIA [None]
  - HAEMORRHAGE [None]
